FAERS Safety Report 22227104 (Version 1)
Quarter: 2023Q2

REPORT INFORMATION
  Report Type: Report from Study
  Country: IT (occurrence: IT)
  Receive Date: 20230419
  Receipt Date: 20230419
  Transmission Date: 20230722
  Serious: Yes (Death)
  Sender: FDA-Public Use
  Company Number: IT-002147023-NVSC2023IT043829

PATIENT
  Age: 58 Year
  Sex: Female

DRUGS (2)
  1. KISQALI [Suspect]
     Active Substance: RIBOCICLIB
     Indication: Product used for unknown indication
     Dosage: UNK
     Route: 065
     Dates: start: 20210701
  2. KISQALI [Suspect]
     Active Substance: RIBOCICLIB
     Dosage: UNK
     Route: 065

REACTIONS (2)
  - Sudden death [Fatal]
  - Tumour marker abnormal [Unknown]

NARRATIVE: CASE EVENT DATE: 20230222
